FAERS Safety Report 7940177-4 (Version None)
Quarter: 2011Q4

REPORT INFORMATION
  Report Type: 
  Country: None (occurrence: None)
  Receive Date: 20111125
  Receipt Date: 20111018
  Transmission Date: 20120403
  Serious: Yes (Other)
  Sender: FDA-Public Use
  Company Number: PHHY2011GB92778

PATIENT
  Age: 52 Year
  Sex: Female

DRUGS (12)
  1. LAMOTRIGINE [Suspect]
  2. GLICLAZIDE [Concomitant]
  3. ATORVASTATIN [Concomitant]
  4. BENDROFLUMETHIAZIDE [Concomitant]
  5. CARBAMAZEPINE [Suspect]
     Indication: EPILEPSY
  6. METFORMIN [Concomitant]
  7. AMLODIPINE [Concomitant]
  8. CITALOPRAM HYDROBROMIDE [Concomitant]
  9. DIPYRIDAMOLE [Concomitant]
  10. ATENOLOL [Concomitant]
  11. ASPIRIN [Concomitant]
  12. ENALAPRIL MALEATE [Concomitant]

REACTIONS (5)
  - FEELING ABNORMAL [None]
  - MUSCULAR WEAKNESS [None]
  - CONFUSIONAL STATE [None]
  - HYPERAMMONAEMIA [None]
  - LETHARGY [None]
